FAERS Safety Report 8304451 (Version 2)
Quarter: 2013Q4

REPORT INFORMATION
  Report Type: Spontaneous
  Country: US (occurrence: US)
  Receive Date: 20111221
  Receipt Date: 20131223
  Transmission Date: 20140711
  Serious: Yes (Other)
  Sender: FDA-Public Use
  Company Number: US-BAYER-2011-119599

PATIENT
  Age: 48 Year
  Sex: Female
  Weight: 25.71 kg

DRUGS (1)
  1. YAZ [Suspect]
     Indication: CONTRACEPTION
     Dosage: UNK
     Dates: start: 200612, end: 2009

REACTIONS (7)
  - Gallbladder disorder [None]
  - Biliary dyskinesia [None]
  - Pain [None]
  - Injury [None]
  - Post cholecystectomy syndrome [None]
  - Gastrointestinal disorder [None]
  - Anxiety [None]
